FAERS Safety Report 6459942-8 (Version None)
Quarter: 2009Q4

REPORT INFORMATION
  Report Type: 
  Country: None (occurrence: None)
  Receive Date: 20091129
  Receipt Date: 20091116
  Transmission Date: 20100525
  Serious: Yes (Hospitalization, Other)
  Sender: FDA-Public Use
  Company Number: PHHY2009DE50570

PATIENT
  Sex: Male

DRUGS (4)
  1. RASILEZ [Suspect]
     Indication: HYPERTENSION
     Dosage: 1 DF, QD
     Dates: start: 20091031, end: 20091102
  2. DIOVAN HCT [Concomitant]
     Dosage: 160/12.5 MG, 1 DF QD
  3. ASPIRIN [Concomitant]
     Dosage: 1 DF, QD
  4. SIMVAHEXAL [Concomitant]
     Dosage: 40 MG, 1 DF QD

REACTIONS (3)
  - ANAPHYLACTIC SHOCK [None]
  - DRUG INTOLERANCE [None]
  - HYPERTENSION [None]
